FAERS Safety Report 7386514-3 (Version None)
Quarter: 2011Q1

REPORT INFORMATION
  Report Type: 
  Country: None (occurrence: None)
  Receive Date: 20110329
  Receipt Date: 20110329
  Transmission Date: 20110831
  Serious: Yes (Other)
  Sender: FDA-Public Use
  Company Number: None

PATIENT
  Age: 54 Year
  Sex: Female
  Weight: 65.7716 kg

DRUGS (1)
  1. EVISTA [Suspect]
     Indication: NEOPLASM PROPHYLAXIS
     Dosage: 60 MG DAILY PO
     Route: 048
     Dates: start: 20091101, end: 20100301

REACTIONS (1)
  - PLATELET COUNT DECREASED [None]
